FAERS Safety Report 19959265 (Version 1)
Quarter: 2021Q4

REPORT INFORMATION
  Report Type: Spontaneous
  Country: US (occurrence: US)
  Receive Date: 20211014
  Receipt Date: 20211014
  Transmission Date: 20220303
  Serious: No
  Sender: FDA-Public Use
  Company Number: None

PATIENT
  Age: 56 Year
  Sex: Female

DRUGS (10)
  1. SKYRIZI [Suspect]
     Active Substance: RISANKIZUMAB-RZAA
     Indication: Psoriasis
     Dosage: ?          OTHER FREQUENCY:EVERY 12 WEEKS;
     Route: 058
     Dates: start: 20210421
  2. SPIRONOLACTONE [Concomitant]
     Active Substance: SPIRONOLACTONE
  3. JANUVIA [Concomitant]
     Active Substance: SITAGLIPTIN PHOSPHATE
  4. VITAMIN B12 [Concomitant]
     Active Substance: CYANOCOBALAMIN
  5. Centrum multivitamin [Concomitant]
  6. BIOTIN [Concomitant]
     Active Substance: BIOTIN
  7. ATORVASTATIN [Concomitant]
     Active Substance: ATORVASTATIN
  8. FELODIPINE [Concomitant]
     Active Substance: FELODIPINE
  9. METFORMIN [Concomitant]
     Active Substance: METFORMIN HYDROCHLORIDE
  10. CETIRIZINE [Concomitant]
     Active Substance: CETIRIZINE HYDROCHLORIDE

REACTIONS (3)
  - Muscle spasms [None]
  - Influenza like illness [None]
  - Alopecia [None]

NARRATIVE: CASE EVENT DATE: 20210512
